FAERS Safety Report 12865522 (Version 1)
Quarter: 2016Q4

REPORT INFORMATION
  Report Type: Spontaneous
  Country: US (occurrence: US)
  Receive Date: 20161020
  Receipt Date: 20161020
  Transmission Date: 20170207
  Serious: Yes (Death, Other)
  Sender: FDA-Public Use
  Company Number: US-TEVA-703788USA

PATIENT
  Age: 69 Year
  Sex: Female

DRUGS (3)
  1. ACTIQ [Suspect]
     Active Substance: FENTANYL CITRATE
     Indication: ABDOMINAL PAIN
  2. ACTIQ [Suspect]
     Active Substance: FENTANYL CITRATE
     Indication: VOMITING
     Dosage: 1200 MICROGRAM DAILY;
     Route: 065
     Dates: end: 20150630
  3. FENTANYL. [Concomitant]
     Active Substance: FENTANYL
     Indication: PAIN
     Route: 062

REACTIONS (3)
  - Blood test abnormal [Recovered/Resolved]
  - Death [Fatal]
  - Product use issue [Unknown]

NARRATIVE: CASE EVENT DATE: 201504
